FAERS Safety Report 26036894 (Version 1)
Quarter: 2025Q4

REPORT INFORMATION
  Report Type: Spontaneous
  Country: US (occurrence: US)
  Receive Date: 20251112
  Receipt Date: 20251112
  Transmission Date: 20260117
  Serious: Yes (Other)
  Sender: NOVO NORDISK
  Company Number: US-NOVOPROD-801862

PATIENT
  Age: 6 Month
  Sex: Male

DRUGS (5)
  1. NOVOEIGHT [Suspect]
     Active Substance: ANTIHEMOPHILIC FACTOR, HUMAN RECOMBINANT
     Indication: Factor VIII deficiency
     Dosage: UNK
     Route: 042
  2. NOVOEIGHT [Suspect]
     Active Substance: ANTIHEMOPHILIC FACTOR, HUMAN RECOMBINANT
     Dosage: 200 IU/KG, QD
     Route: 042
  3. NOVOEIGHT [Suspect]
     Active Substance: ANTIHEMOPHILIC FACTOR, HUMAN RECOMBINANT
     Dosage: 100 IU/KG, QD
     Route: 042
  4. EMICIZUMAB [Concomitant]
     Active Substance: EMICIZUMAB
     Indication: Factor VIII inhibition
     Dosage: 3 MG/KG, QW
  5. EMICIZUMAB [Concomitant]
     Active Substance: EMICIZUMAB
     Indication: Prophylaxis
     Dosage: 1.5 MG/KG, QW

REACTIONS (3)
  - Anti factor VIII antibody positive [Unknown]
  - Haemarthrosis [Unknown]
  - Off label use [Unknown]
